FAERS Safety Report 9097515 (Version 2)
Quarter: 2013Q1

REPORT INFORMATION
  Report Type: Spontaneous
  Country: US (occurrence: US)
  Receive Date: 20130212
  Receipt Date: 20130221
  Transmission Date: 20140127
  Serious: Yes (Death)
  Sender: FDA-Public Use
  Company Number: US-GILEAD-2013-0069612

PATIENT
  Sex: Female

DRUGS (12)
  1. LETAIRIS [Suspect]
     Indication: PULMONARY HYPERTENSION
     Dosage: 10 MG, QD
     Route: 048
     Dates: start: 20130104, end: 201301
  2. LETAIRIS [Suspect]
     Indication: SYSTEMIC SCLEROSIS
     Dosage: 5 MG, QD
     Route: 048
     Dates: start: 201211, end: 20130104
  3. TEMAZEPAM [Concomitant]
  4. DIGOXIN [Concomitant]
  5. PANTOPRAZOLE [Concomitant]
  6. PIOGLITAZONE [Concomitant]
  7. WARFARIN [Concomitant]
  8. CANDESARTAN W/HYDROCHLOROTHIAZIDE [Concomitant]
  9. INSULIN LISPRO [Concomitant]
  10. LISINOPRIL [Concomitant]
  11. ALISKIREN [Concomitant]
  12. CLONIDINE [Concomitant]

REACTIONS (1)
  - Renal failure [Fatal]
